FAERS Safety Report 23491916 (Version 1)
Quarter: 2024Q1

REPORT INFORMATION
  Report Type: Spontaneous
  Country: AU (occurrence: AU)
  Receive Date: 20240207
  Receipt Date: 20240207
  Transmission Date: 20240410
  Serious: Yes (Other)
  Sender: FDA-Public Use
  Company Number: AU-ALKEM LABORATORIES LIMITED-AU-ALKEM-2024-01396

PATIENT
  Age: 6 Year
  Sex: Female

DRUGS (1)
  1. IBUPROFEN [Suspect]
     Active Substance: IBUPROFEN
     Indication: Product used for unknown indication
     Dosage: UNK
     Route: 065

REACTIONS (16)
  - Pneumothorax [Unknown]
  - Intestinal perforation [Unknown]
  - Cough [Unknown]
  - Discomfort [Unknown]
  - Organ failure [Unknown]
  - Panic attack [Unknown]
  - Scar [Unknown]
  - Urinary tract infection [Unknown]
  - Vomiting projectile [Unknown]
  - Swelling [Unknown]
  - Abdominal pain [Unknown]
  - Condition aggravated [Unknown]
  - Drug ineffective [Unknown]
  - Fluid retention [Unknown]
  - Lymphadenopathy [Unknown]
  - Palpitations [Unknown]
